FAERS Safety Report 6999334-6 (Version None)
Quarter: 2010Q3

REPORT INFORMATION
  Report Type: 
  Country: None (occurrence: None)
  Receive Date: 20100920
  Receipt Date: 20090721
  Transmission Date: 20110219
  Serious: Yes (Other)
  Sender: FDA-Public Use
  Company Number: US-ASTRAZENECA-2007UW05881

PATIENT
  Sex: Male

DRUGS (9)
  1. SEROQUEL [Suspect]
     Indication: BIPOLAR DISORDER
     Route: 048
     Dates: start: 20050827
  2. KLONOPIN WAF [Concomitant]
     Indication: BIPOLAR DISORDER
     Dates: start: 20050629
  3. TRAZODONE HCL [Concomitant]
     Dates: start: 20050804
  4. LEXAPRO [Concomitant]
     Dosage: 10 MG TO 20 MG
     Dates: start: 20050929
  5. ABILIFY [Concomitant]
     Dosage: 10 MG TO 20 MG
     Dates: start: 20051020
  6. CELEBREX [Concomitant]
     Indication: ARTHRITIS
     Dates: start: 20051115
  7. SYNTHROID [Concomitant]
     Indication: HYPOTHYROIDISM
     Dates: start: 20050730
  8. ACTOS [Concomitant]
     Dates: start: 20060418
  9. PRILOSEC [Concomitant]
     Indication: GASTROOESOPHAGEAL REFLUX DISEASE
     Dates: start: 20050705

REACTIONS (3)
  - DIABETES MELLITUS [None]
  - KETOACIDOSIS [None]
  - PANCREATITIS [None]
